FAERS Safety Report 8362507-4 (Version None)
Quarter: 2012Q2

REPORT INFORMATION
  Report Type: 
  Country: None (occurrence: None)
  Receive Date: 20120514
  Receipt Date: 20120430
  Transmission Date: 20120825
  Serious: Yes (Congenital Anomaly)
  Sender: FDA-Public Use
  Company Number: 7129164

PATIENT
  Sex: Male

DRUGS (7)
  1. ELEVIT B9 (ELEVIT VITAMINE B9) (VITAMINS) [Concomitant]
  2. CIBLOR (AMOXICILLIN W/CLAVULANATE POTASSIUM) (CALVULANIC ACID, AMOXICI [Concomitant]
  3. VALPROATE SODIUM [Suspect]
     Indication: FOETAL EXPOSURE DURING PREGNANCY
     Dosage: TRANSPLACENTAL
     Route: 064
  4. MAGNE B6 (DYNAMAG) (MAGNESIUM, PYRIDOXINE) [Concomitant]
  5. LEVOTHYROXINE SODIUM [Suspect]
     Indication: FOETAL EXPOSURE DURING PREGNANCY
     Dosage: 25 MCG (25 MCG, 1 IN 1 D) 50 MCG (50 MCG, 1 IN 1 D) TRANSPLACENTAL
     Route: 064
  6. TEGRETOL [Concomitant]
  7. CALCITRIOL [Concomitant]

REACTIONS (2)
  - HYPOSPADIAS [None]
  - MATERNAL DRUGS AFFECTING FOETUS [None]
